FAERS Safety Report 8200860-2 (Version None)
Quarter: 2012Q1

REPORT INFORMATION
  Report Type: 
  Country: None (occurrence: None)
  Receive Date: 20120312
  Receipt Date: 20110408
  Transmission Date: 20120608
  Serious: No
  Sender: FDA-Public Use
  Company Number: US-ABBOTT-11P-163-0717899-00

PATIENT
  Sex: Female
  Weight: 63.56 kg

DRUGS (3)
  1. AYGESTIN [Concomitant]
     Indication: HOT FLUSH
  2. LUPRON DEPOT [Suspect]
     Indication: ENDOMETRIOSIS
     Dates: start: 20110118, end: 20110118
  3. LEXAPRO [Concomitant]
     Indication: DEPRESSION

REACTIONS (2)
  - MASTITIS [None]
  - METRORRHAGIA [None]
